FAERS Safety Report 4581016-1 (Version None)
Quarter: 2005Q1

REPORT INFORMATION
  Report Type: 
  Country: None (occurrence: None)
  Receive Date: 20050214
  Receipt Date: 20040719
  Transmission Date: 20050727
  Serious: No
  Sender: FDA-Public Use
  Company Number: US-GLAXOSMITHKLINE-A0518813A

PATIENT
  Age: 40 Year
  Sex: Male
  Weight: 86.4 kg

DRUGS (6)
  1. LAMICTAL [Suspect]
     Indication: ILL-DEFINED DISORDER
     Dosage: 100MG PER DAY
     Route: 048
  2. GEODON [Suspect]
     Indication: DRUG USE FOR UNKNOWN INDICATION
     Dosage: 120MG PER DAY
     Route: 065
  3. XANAX [Concomitant]
     Dosage: 3MG PER DAY
     Route: 065
  4. WELLBUTRIN XL [Concomitant]
     Dosage: 150MG PER DAY
     Route: 048
  5. TEMAZEPAM [Concomitant]
     Dosage: 30MG PER DAY
     Route: 065
  6. DEPAKOTE [Concomitant]

REACTIONS (1)
  - RASH [None]
